FAERS Safety Report 24343132 (Version 7)
Quarter: 2025Q3

REPORT INFORMATION
  Report Type: Other
  Country: CA (occurrence: CA)
  Receive Date: 20240920
  Receipt Date: 20250910
  Transmission Date: 20251021
  Serious: Yes (Other)
  Sender: GLENMARK
  Company Number: CA-GLENMARK PHARMACEUTICALS-2024GMK094008

PATIENT
  Age: 45 Year
  Sex: Female

DRUGS (44)
  1. EZETIMIBE [Suspect]
     Active Substance: EZETIMIBE
     Indication: Type IIa hyperlipidaemia
     Route: 065
  2. EZETIMIBE [Suspect]
     Active Substance: EZETIMIBE
     Route: 065
  3. EZETIMIBE [Suspect]
     Active Substance: EZETIMIBE
     Route: 065
  4. ATORVASTATIN [Suspect]
     Active Substance: ATORVASTATIN
     Indication: Type IIa hyperlipidaemia
     Route: 065
  5. ATORVASTATIN [Suspect]
     Active Substance: ATORVASTATIN
     Route: 065
  6. ATORVASTATIN [Suspect]
     Active Substance: ATORVASTATIN
     Route: 065
  7. EVINACUMAB [Suspect]
     Active Substance: EVINACUMAB
     Indication: Type IIa hyperlipidaemia
     Route: 058
  8. EVINACUMAB [Suspect]
     Active Substance: EVINACUMAB
     Route: 058
  9. EVINACUMAB [Suspect]
     Active Substance: EVINACUMAB
     Route: 042
  10. EVINACUMAB [Suspect]
     Active Substance: EVINACUMAB
     Route: 042
  11. LOMITAPIDE [Suspect]
     Active Substance: LOMITAPIDE
     Indication: Type IIa hyperlipidaemia
     Route: 065
  12. LOMITAPIDE [Suspect]
     Active Substance: LOMITAPIDE
     Route: 065
  13. LOMITAPIDE [Suspect]
     Active Substance: LOMITAPIDE
     Route: 065
  14. LOMITAPIDE [Suspect]
     Active Substance: LOMITAPIDE
     Route: 065
  15. LOMITAPIDE [Suspect]
     Active Substance: LOMITAPIDE
     Route: 065
  16. LOMITAPIDE [Suspect]
     Active Substance: LOMITAPIDE
     Route: 065
  17. ROSUVASTATIN [Suspect]
     Active Substance: ROSUVASTATIN
     Indication: Type IIa hyperlipidaemia
     Route: 065
  18. ROSUVASTATIN [Suspect]
     Active Substance: ROSUVASTATIN
     Route: 065
  19. ROSUVASTATIN [Suspect]
     Active Substance: ROSUVASTATIN
     Route: 065
  20. ATORVASTATIN [Suspect]
     Active Substance: ATORVASTATIN
     Indication: Type IIa hyperlipidaemia
     Route: 065
  21. EVINACUMAB [Suspect]
     Active Substance: EVINACUMAB
     Indication: Type IIa hyperlipidaemia
     Route: 042
  22. EVINACUMAB [Suspect]
     Active Substance: EVINACUMAB
     Route: 065
  23. EVINACUMAB [Suspect]
     Active Substance: EVINACUMAB
     Route: 058
  24. EVINACUMAB [Suspect]
     Active Substance: EVINACUMAB
     Indication: Type IIa hyperlipidaemia
     Route: 042
  25. LOMITAPIDE [Suspect]
     Active Substance: LOMITAPIDE
     Indication: Type IIa hyperlipidaemia
     Route: 065
  26. EVKEEZA [Suspect]
     Active Substance: EVINACUMAB-DGNB
     Indication: Type IIa hyperlipidaemia
     Route: 042
  27. EVKEEZA [Suspect]
     Active Substance: EVINACUMAB-DGNB
     Route: 058
  28. EVKEEZA [Suspect]
     Active Substance: EVINACUMAB-DGNB
     Route: 058
  29. EVKEEZA [Suspect]
     Active Substance: EVINACUMAB-DGNB
     Route: 042
  30. JUXTAPID [Suspect]
     Active Substance: LOMITAPIDE MESYLATE
     Indication: Type IIa hyperlipidaemia
     Route: 065
  31. JUXTAPID [Suspect]
     Active Substance: LOMITAPIDE MESYLATE
     Route: 065
  32. JUXTAPID [Suspect]
     Active Substance: LOMITAPIDE MESYLATE
     Route: 065
  33. JUXTAPID [Suspect]
     Active Substance: LOMITAPIDE MESYLATE
     Route: 065
  34. JUXTAPID [Suspect]
     Active Substance: LOMITAPIDE MESYLATE
     Route: 065
  35. JUXTAPID [Suspect]
     Active Substance: LOMITAPIDE MESYLATE
     Route: 065
  36. ATORVASTATIN CALCIUM [Suspect]
     Active Substance: ATORVASTATIN CALCIUM
     Indication: Type IIa hyperlipidaemia
     Route: 065
  37. ATORVASTATIN CALCIUM [Suspect]
     Active Substance: ATORVASTATIN CALCIUM
     Route: 065
  38. ATORVASTATIN CALCIUM [Suspect]
     Active Substance: ATORVASTATIN CALCIUM
     Indication: Type IIa hyperlipidaemia
     Route: 065
  39. JUXTAPID [Suspect]
     Active Substance: LOMITAPIDE MESYLATE
     Indication: Type IIa hyperlipidaemia
     Route: 065
  40. JUXTAPID [Suspect]
     Active Substance: LOMITAPIDE MESYLATE
     Route: 065
  41. JUXTAPID [Suspect]
     Active Substance: LOMITAPIDE MESYLATE
     Route: 065
  42. JUXTAPID [Suspect]
     Active Substance: LOMITAPIDE MESYLATE
     Route: 065
  43. JUXTAPID [Suspect]
     Active Substance: LOMITAPIDE MESYLATE
     Route: 065
  44. JUXTAPID [Suspect]
     Active Substance: LOMITAPIDE MESYLATE
     Indication: Type IIa hyperlipidaemia
     Route: 065

REACTIONS (4)
  - Hepatic steatosis [Recovering/Resolving]
  - International normalised ratio increased [Recovering/Resolving]
  - Diarrhoea [Recovering/Resolving]
  - Nausea [Recovering/Resolving]
